FAERS Safety Report 7752920-8 (Version None)
Quarter: 2011Q3

REPORT INFORMATION
  Report Type: 
  Country: None (occurrence: None)
  Receive Date: 20110915
  Receipt Date: 20110831
  Transmission Date: 20111222
  Serious: Yes (Death, Hospitalization, Other)
  Sender: FDA-Public Use
  Company Number: CA-ELI_LILLY_AND_COMPANY-CA201108009381

PATIENT
  Sex: Male

DRUGS (5)
  1. LIPITOR [Concomitant]
     Indication: DYSLIPIDAEMIA
  2. EFFEXOR [Concomitant]
  3. LORAZEPAM [Concomitant]
  4. ADALAT [Concomitant]
     Indication: HYPERTENSION
     Dosage: 500 MG, BID
  5. ZYPREXA [Suspect]
     Indication: AGGRESSION
     Dosage: 2.5 MG, EACH EVENING

REACTIONS (16)
  - PARKINSON'S DISEASE [None]
  - CEREBRAL ATROPHY [None]
  - DIABETES MELLITUS [None]
  - FALL [None]
  - OFF LABEL USE [None]
  - MENTAL STATUS CHANGES [None]
  - DEATH [None]
  - HYPERGLYCAEMIA [None]
  - CEREBRAL ARTERIOSCLEROSIS [None]
  - SLEEP APNOEA SYNDROME [None]
  - MENTAL IMPAIRMENT [None]
  - WEIGHT INCREASED [None]
  - UPPER RESPIRATORY TRACT INFECTION [None]
  - SUICIDAL IDEATION [None]
  - DISORIENTATION [None]
  - DELIRIUM [None]
